FAERS Safety Report 5774189-6 (Version None)
Quarter: 2008Q2

REPORT INFORMATION
  Report Type: 
  Country: None (occurrence: None)
  Receive Date: 20080601
  Receipt Date: 20080204
  Transmission Date: 20081010
  Serious: No
  Sender: FDA-Public Use
  Company Number: US200710005238

PATIENT
  Age: 65 Year
  Sex: Female
  Weight: 97.1 kg

DRUGS (13)
  1. BYETTA [Suspect]
     Indication: TYPE 2 DIABETES MELLITUS
     Dosage: 10 UG, SUBCUTANEOUS
     Route: 058
     Dates: start: 20070917, end: 20070101
  2. EXENATIDE PEN, DISPOSABLE DEVICE (EXENATIDE PEN) PEN,DISPOSABLE [Concomitant]
  3. METFORMIN HCL [Concomitant]
  4. LEVEMIR (INSULIN DETEMIR) [Concomitant]
  5. ZETIA [Concomitant]
  6. SYNTHROID [Concomitant]
  7. TOPROL-XL [Concomitant]
  8. CHROMIUM (CHROMIUM) [Concomitant]
  9. ASPIRIN [Concomitant]
  10. FUROSEMIDE [Concomitant]
  11. ENALAPRIL MALEATE [Concomitant]
  12. PREVACID [Concomitant]
  13. LIPITOR [Concomitant]

REACTIONS (3)
  - CHEST DISCOMFORT [None]
  - DIARRHOEA [None]
  - VOMITING [None]
